FAERS Safety Report 16381035 (Version 2)
Quarter: 2023Q1

REPORT INFORMATION
  Report Type: Spontaneous
  Country: DE (occurrence: DE)
  Receive Date: 20190602
  Receipt Date: 20230104
  Transmission Date: 20230417
  Serious: Yes (Hospitalization)
  Sender: FDA-Public Use
  Company Number: PHHY2019DE121891

PATIENT
  Age: 67 Year
  Sex: Male
  Weight: 85 kg

DRUGS (32)
  1. FLUOROURACIL [Suspect]
     Active Substance: FLUOROURACIL
     Indication: Colorectal cancer metastatic
     Dosage: 1187 MG, UNK
     Route: 040
  2. FLUOROURACIL [Suspect]
     Active Substance: FLUOROURACIL
     Dosage: 800 MG, UNK
     Route: 042
  3. FLUOROURACIL [Suspect]
     Active Substance: FLUOROURACIL
     Dosage: 791 MG, UNK
     Route: 042
  4. FLUOROURACIL [Suspect]
     Active Substance: FLUOROURACIL
     Dosage: 1200 MG, UNK
     Route: 040
  5. FLUOROURACIL [Suspect]
     Active Substance: FLUOROURACIL
     Dosage: 1200 MG (1200 MILLIGRAM)
     Route: 042
     Dates: start: 20190311
  6. FLUOROURACIL [Suspect]
     Active Substance: FLUOROURACIL
     Dosage: 1187 MG (1187 MILLIGRAM)
     Route: 042
     Dates: start: 20190325
  7. FLUOROURACIL [Suspect]
     Active Substance: FLUOROURACIL
     Dosage: 800 MG (800 MILLIGRAM)
     Route: 042
     Dates: start: 20190311
  8. FLUOROURACIL [Suspect]
     Active Substance: FLUOROURACIL
     Dosage: 791 MG (791 MILLIGRAM)
     Route: 042
     Dates: start: 20190325
  9. OXALIPLATIN [Suspect]
     Active Substance: OXALIPLATIN
     Indication: Colorectal cancer metastatic
     Dosage: 84 MG, UNK
     Route: 065
  10. OXALIPLATIN [Suspect]
     Active Substance: OXALIPLATIN
     Dosage: 85 MG, UNK
     Route: 065
  11. OXALIPLATIN [Suspect]
     Active Substance: OXALIPLATIN
     Dosage: 84 MG (84 MILLIGRAM)
     Route: 065
     Dates: start: 20190325
  12. OXALIPLATIN [Suspect]
     Active Substance: OXALIPLATIN
     Dosage: 85 MG (85 MILLIGRAM)
     Route: 065
     Dates: start: 20190311
  13. LEUCOVORIN [Suspect]
     Active Substance: LEUCOVORIN
     Indication: Colorectal cancer metastatic
     Dosage: 800 MG, UNK
     Route: 065
  14. LEUCOVORIN [Suspect]
     Active Substance: LEUCOVORIN
     Dosage: 791 MG, UNK
     Route: 065
  15. LEUCOVORIN [Suspect]
     Active Substance: LEUCOVORIN
     Dosage: 791 MG (791 MILLIGRAM)
     Route: 065
     Dates: start: 20190325
  16. LEUCOVORIN [Suspect]
     Active Substance: LEUCOVORIN
     Dosage: 800 MG (800 MILLIGRAM)
     Route: 065
     Dates: start: 20190311
  17. VECTIBIX [Suspect]
     Active Substance: PANITUMUMAB
     Indication: Colorectal cancer metastatic
     Dosage: 474 MG, UNK
     Route: 042
  18. PANITUMUMAB [Suspect]
     Active Substance: PANITUMUMAB
     Indication: Colorectal cancer metastatic
     Dosage: 474 MG (474 MILLIGRAM)
     Route: 042
     Dates: start: 20190325
  19. VALSARTAN [Concomitant]
     Active Substance: VALSARTAN
     Indication: Hypertension
     Dosage: 160 MG, QD (160 MILLIGRAM, QD)
     Route: 048
     Dates: start: 20190218, end: 20190415
  20. BETAHISTINE DIMESILATE [Concomitant]
     Indication: Meniere^s disease
     Dosage: 18 MG, TID
     Route: 048
     Dates: start: 20190218
  21. BETAHISTINE DIMESILATE [Concomitant]
     Dosage: 18 MG, QD (6 MILLIGRAM, TID
     Route: 048
     Dates: start: 20190218, end: 20190415
  22. ENOXAPARIN [Concomitant]
     Active Substance: ENOXAPARIN
     Indication: Thrombosis prophylaxis
     Dosage: 40 ML, QD (40 MILLILITER, QD)
     Route: 048
     Dates: start: 20190218, end: 20190322
  23. BISOPROLOL FUMARATE [Concomitant]
     Active Substance: BISOPROLOL FUMARATE
     Indication: Hypertension
     Dosage: 18 MG, QD
     Route: 048
     Dates: start: 20190218
  24. BISOPROLOL FUMARATE [Concomitant]
     Active Substance: BISOPROLOL FUMARATE
     Dosage: 7.5 MG, QD (2.5 MILLIGRAM, TID)
     Route: 048
     Dates: start: 20190218
  25. PANTOPRAZOLE [Concomitant]
     Active Substance: PANTOPRAZOLE
     Indication: Product used for unknown indication
     Dosage: 40 MG, QD
     Route: 048
     Dates: start: 20190218
  26. METAMIZOLE [Concomitant]
     Active Substance: METAMIZOLE
     Indication: Product used for unknown indication
     Dosage: 30 MG (30 MILLIGRAM, PRN (AS NEEDED)
     Route: 048
     Dates: start: 20190415
  27. ACETAMINOPHEN [Concomitant]
     Active Substance: ACETAMINOPHEN
     Indication: Product used for unknown indication
     Dosage: 1500 MG, QD (500 MILLIGRAM, TID)
     Route: 048
     Dates: start: 20190301, end: 20190415
  28. HYDROMORPHONE [Concomitant]
     Active Substance: HYDROMORPHONE
     Indication: Product used for unknown indication
     Dosage: 16 MG, QD (8 MILLIGRAM, BID)
     Route: 048
     Dates: start: 20190423
  29. DOXYCYCLINE [Concomitant]
     Active Substance: DOXYCYCLINE
     Indication: Product used for unknown indication
     Dosage: 100 MG, QD (100 MILLIGRAM, QD)
     Route: 048
     Dates: start: 20190415
  30. ONDANSETRON [Concomitant]
     Active Substance: ONDANSETRON
     Indication: Product used for unknown indication
     Dosage: 8 MG, PRN (8 MILLIGRAM, PRN (AS NEEDED)
     Route: 048
     Dates: start: 20190415
  31. DIMENHYDRINATE [Concomitant]
     Active Substance: DIMENHYDRINATE
     Indication: Product used for unknown indication
     Dosage: 150 MG, PRN (150 MILLIGRAM, PRN)
     Route: 048
     Dates: start: 20190301, end: 20190414
  32. NALOXONE HYDROCHLORIDE\TILIDINE HYDROCHLORIDE [Concomitant]
     Active Substance: NALOXONE HYDROCHLORIDE\TILIDINE HYDROCHLORIDE
     Indication: Product used for unknown indication
     Dosage: 100 MG, QD (50 MILLIGRAM, BID
     Route: 048
     Dates: start: 20190415, end: 20190423

REACTIONS (3)
  - Sinus tachycardia [Recovering/Resolving]
  - Dyspnoea [Recovering/Resolving]
  - Vomiting [Unknown]

NARRATIVE: CASE EVENT DATE: 20190424
